FAERS Safety Report 8914651 (Version 1)
Quarter: 2012Q4

REPORT INFORMATION
  Report Type: 
  Country: CA (occurrence: CA)
  Receive Date: 20121119
  Receipt Date: 20121119
  Transmission Date: 20130627
  Serious: Yes (Death)
  Sender: FDA-Public Use
  Company Number: CA-ASTRAZENECA-2012SE86556

PATIENT
  Age: 2 Month
  Sex: Male

DRUGS (4)
  1. SEROQUEL [Suspect]
     Route: 064
  2. EFFEXOR XR [Suspect]
     Route: 064
  3. DICLECTIN [Concomitant]
     Route: 064
  4. RANITIDINE [Concomitant]
     Route: 064

REACTIONS (1)
  - Sudden infant death syndrome [Fatal]
